FAERS Safety Report 11287528 (Version 1)
Quarter: 2015Q3

REPORT INFORMATION
  Report Type: Spontaneous
  Country: AR (occurrence: AR)
  Receive Date: 20150721
  Receipt Date: 20150721
  Transmission Date: 20151125
  Serious: Yes (Other)
  Sender: FDA-Public Use
  Company Number: PHHY2015AR079132

PATIENT
  Age: 74 Year
  Sex: Male

DRUGS (4)
  1. GALVUS [Suspect]
     Active Substance: VILDAGLIPTIN
     Indication: TYPE 2 DIABETES MELLITUS
     Dosage: 1 DF, QD
     Route: 048
     Dates: start: 201108
  2. DIOVAN [Suspect]
     Active Substance: VALSARTAN
     Indication: PRODUCT USED FOR UNKNOWN INDICATION
     Route: 065
  3. GALVUS [Suspect]
     Active Substance: VILDAGLIPTIN
     Dosage: 2 DF, QD
     Route: 048
  4. GLIMEPIRIDE. [Concomitant]
     Active Substance: GLIMEPIRIDE
     Indication: PRODUCT USED FOR UNKNOWN INDICATION
     Dosage: 4 MG, QD
     Route: 065

REACTIONS (21)
  - Abdominal pain upper [Recovered/Resolved]
  - Frequent bowel movements [Not Recovered/Not Resolved]
  - Urticaria [Not Recovered/Not Resolved]
  - Gamma-glutamyltransferase increased [Unknown]
  - Blister [Recovering/Resolving]
  - Dysphonia [Not Recovered/Not Resolved]
  - Bilirubin conjugated increased [Unknown]
  - Rash [Not Recovered/Not Resolved]
  - Blood alkaline phosphatase increased [Unknown]
  - Fall [Unknown]
  - Acetabulum fracture [Unknown]
  - Malaise [Not Recovered/Not Resolved]
  - Dyspnoea [Recovering/Resolving]
  - Liver disorder [Not Recovered/Not Resolved]
  - Blood glucose increased [Unknown]
  - Burning sensation [Not Recovered/Not Resolved]
  - Hyperhidrosis [Not Recovered/Not Resolved]
  - Dysphagia [Not Recovered/Not Resolved]
  - Osteoarthritis [Unknown]
  - Hot flush [Unknown]
  - Blood bilirubin increased [Unknown]

NARRATIVE: CASE EVENT DATE: 20150704
